FAERS Safety Report 9701100 (Version 2)
Quarter: 2013Q4

REPORT INFORMATION
  Report Type: Spontaneous
  Country: GB (occurrence: GB)
  Receive Date: 20131121
  Receipt Date: 20131213
  Transmission Date: 20140711
  Serious: Yes (Hospitalization)
  Sender: FDA-Public Use
  Company Number: GB-JNJFOC-20131109875

PATIENT
  Age: 48 Year
  Sex: Female
  Weight: 70.4 kg

DRUGS (12)
  1. REMICADE [Suspect]
     Indication: RHEUMATOID ARTHRITIS
     Dosage: FIRST FOUR INFLIXIMAB INFUSIONS
     Route: 042
  2. REMICADE [Suspect]
     Indication: RHEUMATOID ARTHRITIS
     Dosage: LAST TWO INFLIXIMAB DOSES
     Route: 042
     Dates: start: 20131114, end: 20131114
  3. METHOTREXATE [Concomitant]
     Route: 058
  4. DF118 [Concomitant]
     Indication: PAIN
     Dosage: EVERY 4-6 WEEKS
     Route: 065
  5. FOLIC ACID [Concomitant]
     Dosage: EVERY 4-6 WEEKS
     Route: 065
  6. LACTULOSE [Concomitant]
     Dosage: EVERY 4-6 WEEKS
     Route: 065
  7. LAXIDO [Concomitant]
     Dosage: EVERY 4-6 WEEKS
     Route: 065
  8. LOFEPRAMINE [Concomitant]
     Dosage: 10 MG AT DAY??140 MG AT NIGHT
     Route: 048
  9. MEBEVERINE [Concomitant]
     Route: 065
  10. OLANZAPINE [Concomitant]
     Dosage: 7.5 MG AT NIGHT AND 2.5 MG IN MORNING
     Route: 065
  11. PARACETAMOL [Concomitant]
     Route: 065
  12. RANITIDINE [Concomitant]
     Route: 065

REACTIONS (4)
  - Dyspnoea [Recovered/Resolved]
  - Cyanosis [Recovered/Resolved]
  - Infusion related reaction [Recovered/Resolved]
  - Panic attack [Unknown]
